FAERS Safety Report 4800487-6 (Version None)
Quarter: 2005Q4

REPORT INFORMATION
  Report Type: 
  Country: None (occurrence: None)
  Receive Date: 20051003
  Receipt Date: 20041125
  Transmission Date: 20060501
  Serious: Yes (Death)
  Sender: FDA-Public Use
  Company Number: 20041100492

PATIENT
  Age: 51 Year
  Sex: Female

DRUGS (2)
  1. SUPRANE [Suspect]
     Indication: ANAESTHESIA
     Dosage: ONCE; IH
     Route: 055
     Dates: start: 20041115, end: 20041115
  2. SUPRANE [Suspect]
     Indication: ANAESTHESIA
     Dosage: ONCE; IH
     Route: 055
     Dates: start: 20041117, end: 20041117

REACTIONS (3)
  - HEPATOCELLULAR DAMAGE [None]
  - POST PROCEDURAL COMPLICATION [None]
  - THROMBOSIS [None]
